FAERS Safety Report 10019732 (Version 3)
Quarter: 2014Q2

REPORT INFORMATION
  Report Type: Spontaneous
  Country: US (occurrence: US)
  Receive Date: 20140318
  Receipt Date: 20140618
  Transmission Date: 20141212
  Serious: No
  Sender: FDA-Public Use
  Company Number: US-GALDERMA-US14000167

PATIENT
  Age: 66 Year
  Sex: Female

DRUGS (7)
  1. MIRVASO (BRIMONIDINE) TOPICAL GEL, 0.33% [Suspect]
     Indication: ROSACEA
     Dosage: 0.33%
     Route: 061
     Dates: start: 20140106, end: 20140111
  2. METROGEL  (METRONIDAZOLE) GEL, 1% [Concomitant]
     Indication: ROSACEA
     Route: 061
     Dates: start: 201307
  3. ORACEA (DOXYCYCLINE, USP) CAPSULES 40 MG [Concomitant]
     Indication: ROSACEA
     Dosage: 40 MG
     Route: 048
     Dates: start: 201310
  4. TRETINOIN [Concomitant]
     Indication: ROSACEA
     Dosage: 0.1%
     Route: 061
     Dates: start: 1984
  5. VALSART/HCTZ [Concomitant]
     Indication: HYPERTENSION
     Dosage: 160-25
     Route: 048
  6. ATORVASTATIN CALCIUM [Concomitant]
     Indication: HYPERLIPIDAEMIA
     Dosage: 10 MG
     Route: 048
     Dates: start: 2004
  7. OCCUVITE [Concomitant]
     Indication: SUPPLEMENTATION THERAPY
     Route: 048
     Dates: start: 201101

REACTIONS (10)
  - Condition aggravated [Recovered/Resolved]
  - Rash erythematous [Recovered/Resolved]
  - Vasodilatation [Not Recovered/Not Resolved]
  - Feeling hot [Recovered/Resolved]
  - Rash papular [Recovered/Resolved]
  - Skin exfoliation [Recovered/Resolved]
  - Erythema [Recovered/Resolved]
  - Skin warm [Recovered/Resolved]
  - Flushing [Recovered/Resolved]
  - Dermatitis [Recovered/Resolved]
